FAERS Safety Report 5508173-4 (Version None)
Quarter: 2007Q4

REPORT INFORMATION
  Report Type: 
  Country: None (occurrence: None)
  Receive Date: 20071106
  Receipt Date: 20071025
  Transmission Date: 20080405
  Serious: Yes (Death, Hospitalization)
  Sender: FDA-Public Use
  Company Number: JP-SANOFI-SYNTHELABO-F01200700824

PATIENT
  Sex: Female
  Weight: 50.6 kg

DRUGS (5)
  1. CLOPIDOGREL [Suspect]
     Indication: THROMBOSIS
     Route: 048
     Dates: start: 20070627, end: 20070630
  2. FAMOTIDINE [Concomitant]
     Dosage: 20 MG
     Route: 065
     Dates: start: 20070625, end: 20070630
  3. LENDORMIN D [Concomitant]
     Dosage: 1 TABLET
     Route: 048
     Dates: start: 20070625
  4. PLETAL [Suspect]
  5. ASPIRIN [Suspect]

REACTIONS (1)
  - DUODENAL ULCER [None]
